FAERS Safety Report 8839968 (Version 1)
Quarter: 2012Q4

REPORT INFORMATION
  Report Type: 
  Country: US (occurrence: US)
  Receive Date: 20121015
  Receipt Date: 20121015
  Transmission Date: 20130627
  Serious: Yes (Other)
  Sender: FDA-Public Use
  Company Number: US-PFIZER INC-2012254257

PATIENT
  Sex: Female

DRUGS (2)
  1. DOXAZOSIN MESILATE [Suspect]
     Dosage: UNK
  2. VERAPAMIL HCL [Suspect]
     Dosage: UNK

REACTIONS (2)
  - Deafness unilateral [Unknown]
  - Blood pressure abnormal [Unknown]
